FAERS Safety Report 4815640-5 (Version None)
Quarter: 2005Q4

REPORT INFORMATION
  Report Type: 
  Country: None (occurrence: None)
  Receive Date: 20051026
  Receipt Date: 20051013
  Transmission Date: 20060501
  Serious: Yes (Other)
  Sender: FDA-Public Use
  Company Number: 2005142830

PATIENT
  Sex: Male
  Weight: 200 kg

DRUGS (2)
  1. ZMAX [Suspect]
     Indication: SINUSITIS
     Dosage: (ONCE), ORAL
     Route: 048
     Dates: start: 20051004, end: 20051004
  2. BENADRYL [Suspect]
     Indication: PRURITUS

REACTIONS (5)
  - ANAPHYLACTIC REACTION [None]
  - CHEST PAIN [None]
  - PRURITUS [None]
  - RESPIRATORY ARREST [None]
  - URTICARIA [None]
